FAERS Safety Report 8348432-3 (Version None)
Quarter: 2012Q2

REPORT INFORMATION
  Report Type: 
  Country: None (occurrence: None)
  Receive Date: 20120509
  Receipt Date: 20100715
  Transmission Date: 20120825
  Serious: No
  Sender: FDA-Public Use
  Company Number: US-TEVA-2010003810

PATIENT
  Sex: Female

DRUGS (1)
  1. NUVIGIL [Suspect]
     Route: 048

REACTIONS (3)
  - FEELING ABNORMAL [None]
  - MANIA [None]
  - DEPRESSED MOOD [None]
